FAERS Safety Report 24600430 (Version 3)
Quarter: 2025Q1

REPORT INFORMATION
  Report Type: Spontaneous
  Country: US (occurrence: US)
  Receive Date: 20241110
  Receipt Date: 20250103
  Transmission Date: 20250409
  Serious: Yes (Hospitalization, Other)
  Sender: SANOFI AVENTIS
  Company Number: US-SA-2024SA315917

PATIENT
  Age: 55 Year
  Sex: Female

DRUGS (2)
  1. DUPIXENT [Suspect]
     Active Substance: DUPILUMAB
     Indication: Eczema
     Route: 058
     Dates: start: 202408, end: 202408
  2. DUPIXENT [Suspect]
     Active Substance: DUPILUMAB
     Indication: Asthma
     Dosage: 300 MG, QOW
     Route: 058
     Dates: start: 2024, end: 20241019

REACTIONS (11)
  - Seizure [Unknown]
  - Thyroidectomy [Unknown]
  - Periorbital swelling [Unknown]
  - Eye pain [Recovered/Resolved]
  - Nerve injury [Not Recovered/Not Resolved]
  - Rash macular [Recovered/Resolved]
  - Herpes zoster [Not Recovered/Not Resolved]
  - Headache [Recovering/Resolving]
  - Ocular hyperaemia [Recovered/Resolved]
  - Dry eye [Unknown]
  - Rash [Recovered/Resolved]

NARRATIVE: CASE EVENT DATE: 20240101
